FAERS Safety Report 5220736-2 (Version None)
Quarter: 2007Q1

REPORT INFORMATION
  Report Type: 
  Country: None (occurrence: None)
  Receive Date: 20070126
  Receipt Date: 20070123
  Transmission Date: 20070707
  Serious: Yes (Hospitalization)
  Sender: FDA-Public Use
  Company Number: GB-AVENTIS-200710605GDDC

PATIENT
  Age: 75 Year
  Sex: Female

DRUGS (5)
  1. GLYBURIDE [Suspect]
     Route: 048
     Dates: start: 20030114
  2. METFORMIN HYDROCHLORIDE [Concomitant]
     Dates: start: 20020522
  3. RENITEC                            /00574901/ [Concomitant]
     Dates: start: 20020522
  4. ASPIRIN [Concomitant]
     Dates: start: 20050112
  5. SELOKEN                            /00376902/ [Concomitant]
     Dates: start: 20061116

REACTIONS (1)
  - ASCITES [None]
